FAERS Safety Report 9678776 (Version 1)
Quarter: 2013Q4

REPORT INFORMATION
  Report Type: Report from Study
  Country: LB (occurrence: LB)
  Receive Date: 20131108
  Receipt Date: 20131108
  Transmission Date: 20140711
  Serious: Yes (Hospitalization, Other)
  Sender: FDA-Public Use
  Company Number: LB-SA-2013SA111997

PATIENT
  Age: 62 Year
  Sex: Female

DRUGS (7)
  1. LANTUS SOLOSTAR [Suspect]
     Indication: PRODUCT USED FOR UNKNOWN INDICATION
     Dosage: DOSE 35-40 IU
     Route: 058
  2. DIAMICRON [Concomitant]
  3. GLIFOR [Concomitant]
  4. NOVORAPID [Concomitant]
  5. PLAVIX [Concomitant]
  6. CO-DIOVAN [Concomitant]
  7. ASPIRIN [Concomitant]

REACTIONS (3)
  - Fatigue [Recovered/Resolved]
  - Chest pain [Recovered/Resolved]
  - Dyspnoea [Recovered/Resolved]
